FAERS Safety Report 5505885-3 (Version None)
Quarter: 2007Q4

REPORT INFORMATION
  Report Type: 
  Country: None (occurrence: None)
  Receive Date: 20071102
  Receipt Date: 20071025
  Transmission Date: 20080405
  Serious: Yes (Life-Threatening)
  Sender: FDA-Public Use
  Company Number: US-PFIZER INC-2007090260

PATIENT

DRUGS (1)
  1. DETROL [Suspect]

REACTIONS (1)
  - HYPOKALAEMIA [None]
